FAERS Safety Report 25712710 (Version 1)
Quarter: 2025Q3

REPORT INFORMATION
  Report Type: Spontaneous
  Country: CN (occurrence: CN)
  Receive Date: 20250821
  Receipt Date: 20250821
  Transmission Date: 20251021
  Serious: Yes (Hospitalization, Other)
  Sender: PURDUE
  Company Number: CN-NAPPMUNDI-GBR-2025-0128197

PATIENT
  Age: 49 Year
  Sex: Male
  Weight: 55 kg

DRUGS (1)
  1. OXYCONTIN [Suspect]
     Active Substance: OXYCODONE HYDROCHLORIDE
     Indication: Abdominal pain
     Dosage: 30 MILLIGRAM, DAILY
     Route: 048
     Dates: start: 20250809, end: 20250809

REACTIONS (8)
  - Vomiting [Recovered/Resolved]
  - Syncope [Recovering/Resolving]
  - Pallor [Unknown]
  - Peripheral coldness [Unknown]
  - Hypotension [Recovering/Resolving]
  - Anaemia [Unknown]
  - Gastrointestinal haemorrhage [Unknown]
  - Electrolyte imbalance [Unknown]

NARRATIVE: CASE EVENT DATE: 20250801
